FAERS Safety Report 5525911-5 (Version None)
Quarter: 2007Q4

REPORT INFORMATION
  Report Type: 
  Country: None (occurrence: None)
  Receive Date: 20071126
  Receipt Date: 20071120
  Transmission Date: 20080405
  Serious: Yes (Hospitalization)
  Sender: FDA-Public Use
  Company Number: US-GENENTECH-251663

PATIENT

DRUGS (3)
  1. BLINDED PLACEBO [Suspect]
     Indication: MULTIPLE SCLEROSIS
  2. BLINDED RITUXIMAB [Suspect]
     Indication: MULTIPLE SCLEROSIS
  3. COZAAR [Concomitant]
     Indication: DRUG USE FOR UNKNOWN INDICATION
     Dosage: 50 MG, QD
     Route: 048

REACTIONS (1)
  - TACHYCARDIA [None]
